FAERS Safety Report 19409969 (Version 4)
Quarter: 2021Q4

REPORT INFORMATION
  Report Type: Spontaneous
  Country: US (occurrence: US)
  Receive Date: 20210614
  Receipt Date: 20211018
  Transmission Date: 20220303
  Serious: Yes (Hospitalization, Other)
  Sender: FDA-Public Use
  Company Number: US-SA-SAC20210610000530

PATIENT
  Age: 64 Year
  Sex: Female
  Weight: 103.8 kg

DRUGS (92)
  1. DUPIXENT [Suspect]
     Active Substance: DUPILUMAB
     Indication: Congenital hypogammaglobulinaemia
     Dosage: 300 MG, QOW
     Route: 058
  2. DUPIXENT [Suspect]
     Active Substance: DUPILUMAB
     Indication: Chronic obstructive pulmonary disease
  3. DUPIXENT [Suspect]
     Active Substance: DUPILUMAB
     Indication: Immunodeficiency
  4. DUPIXENT [Suspect]
     Active Substance: DUPILUMAB
     Indication: Asthma
  5. ACETAMINOPHEN [Concomitant]
     Active Substance: ACETAMINOPHEN
     Dosage: UNK
  6. ACETAMINOPHEN [Concomitant]
     Active Substance: ACETAMINOPHEN
  7. ACETAMINOPHEN [Concomitant]
     Active Substance: ACETAMINOPHEN
  8. DIPHENHYDRAMINE [Concomitant]
     Active Substance: DIPHENHYDRAMINE
  9. DIPHENHYDRAMINE [Concomitant]
     Active Substance: DIPHENHYDRAMINE
  10. DIPHENHYDRAMINE [Concomitant]
     Active Substance: DIPHENHYDRAMINE
  11. EPINEPHRINE [Concomitant]
     Active Substance: EPINEPHRINE
     Dosage: AUTO-INJECTOR
  12. EPINEPHRINE [Concomitant]
     Active Substance: EPINEPHRINE
  13. LIDOCAINE [Concomitant]
     Active Substance: LIDOCAINE
  14. LIDOCAINE [Concomitant]
     Active Substance: LIDOCAINE
  15. LIDOCAINE [Concomitant]
     Active Substance: LIDOCAINE
  16. CUVITRU [Concomitant]
     Active Substance: HUMAN IMMUNOGLOBULIN G
  17. CUVITRU [Concomitant]
     Active Substance: HUMAN IMMUNOGLOBULIN G
  18. CUVITRU [Concomitant]
     Active Substance: HUMAN IMMUNOGLOBULIN G
  19. QUETIAPINE FUMARATE [Concomitant]
     Active Substance: QUETIAPINE FUMARATE
     Dosage: UNK
  20. QUETIAPINE FUMARATE [Concomitant]
     Active Substance: QUETIAPINE FUMARATE
  21. QUETIAPINE FUMARATE [Concomitant]
     Active Substance: QUETIAPINE FUMARATE
  22. PREDNISONE [Concomitant]
     Active Substance: PREDNISONE
  23. PREDNISONE [Concomitant]
     Active Substance: PREDNISONE
  24. PREDNISONE [Concomitant]
     Active Substance: PREDNISONE
  25. CALCIUM;MAGNESIUM;VITAMIN D NOS;ZINC [Concomitant]
  26. CALCIUM;MAGNESIUM;VITAMIN D NOS;ZINC [Concomitant]
  27. METOPROLOL TARTRATE [Concomitant]
     Active Substance: METOPROLOL TARTRATE
     Indication: Acute coronary syndrome
  28. METOPROLOL TARTRATE [Concomitant]
     Active Substance: METOPROLOL TARTRATE
  29. METOPROLOL TARTRATE [Concomitant]
     Active Substance: METOPROLOL TARTRATE
  30. FISH OIL [Concomitant]
     Active Substance: FISH OIL
  31. FISH OIL [Concomitant]
     Active Substance: FISH OIL
  32. FISH OIL [Concomitant]
     Active Substance: FISH OIL
  33. ALPRAZOLAM [Concomitant]
     Active Substance: ALPRAZOLAM
  34. ALPRAZOLAM [Concomitant]
     Active Substance: ALPRAZOLAM
  35. ALPRAZOLAM [Concomitant]
     Active Substance: ALPRAZOLAM
     Dosage: 100150MG
  36. VITAMIN D2 [Concomitant]
     Active Substance: ERGOCALCIFEROL
  37. VITAMIN D2 [Concomitant]
     Active Substance: ERGOCALCIFEROL
  38. VITAMIN D2 [Concomitant]
     Active Substance: ERGOCALCIFEROL
  39. MELOXICAM [Concomitant]
     Active Substance: MELOXICAM
  40. MELOXICAM [Concomitant]
     Active Substance: MELOXICAM
  41. MELOXICAM [Concomitant]
     Active Substance: MELOXICAM
  42. BUPROPION HYDROCHLORIDE [Concomitant]
     Active Substance: BUPROPION HYDROCHLORIDE
     Dosage: UNK
  43. BUPROPION HYDROCHLORIDE [Concomitant]
     Active Substance: BUPROPION HYDROCHLORIDE
  44. BUPROPION HYDROCHLORIDE [Concomitant]
     Active Substance: BUPROPION HYDROCHLORIDE
  45. CONCERTA [Concomitant]
     Active Substance: METHYLPHENIDATE HYDROCHLORIDE
     Dosage: ER 24
  46. CONCERTA [Concomitant]
     Active Substance: METHYLPHENIDATE HYDROCHLORIDE
  47. CONCERTA [Concomitant]
     Active Substance: METHYLPHENIDATE HYDROCHLORIDE
  48. NYSTATIN [Concomitant]
     Active Substance: NYSTATIN
  49. NYSTATIN [Concomitant]
     Active Substance: NYSTATIN
  50. NYSTATIN [Concomitant]
     Active Substance: NYSTATIN
  51. TIZANIDINE HYDROCHLORIDE [Concomitant]
     Active Substance: TIZANIDINE HYDROCHLORIDE
  52. TIZANIDINE HYDROCHLORIDE [Concomitant]
     Active Substance: TIZANIDINE HYDROCHLORIDE
  53. TIZANIDINE HYDROCHLORIDE [Concomitant]
     Active Substance: TIZANIDINE HYDROCHLORIDE
  54. LASIX [Concomitant]
     Active Substance: FUROSEMIDE
  55. LASIX [Concomitant]
     Active Substance: FUROSEMIDE
  56. SPIRIVA [Concomitant]
     Active Substance: TIOTROPIUM BROMIDE MONOHYDRATE
  57. SPIRIVA [Concomitant]
     Active Substance: TIOTROPIUM BROMIDE MONOHYDRATE
  58. SPIRIVA [Concomitant]
     Active Substance: TIOTROPIUM BROMIDE MONOHYDRATE
  59. FERROUS SULFATE [Concomitant]
     Active Substance: FERROUS SULFATE
  60. FERROUS SULFATE [Concomitant]
     Active Substance: FERROUS SULFATE
  61. FERROUS SULFATE [Concomitant]
     Active Substance: FERROUS SULFATE
  62. PERCOCET [Concomitant]
     Active Substance: ACETAMINOPHEN\OXYCODONE HYDROCHLORIDE
  63. PERCOCET [Concomitant]
     Active Substance: ACETAMINOPHEN\OXYCODONE HYDROCHLORIDE
  64. PERCOCET [Concomitant]
     Active Substance: ACETAMINOPHEN\OXYCODONE HYDROCHLORIDE
  65. POTASSIUM CHLORIDE [Concomitant]
     Active Substance: POTASSIUM CHLORIDE
  66. POTASSIUM CHLORIDE [Concomitant]
     Active Substance: POTASSIUM CHLORIDE
  67. POTASSIUM CHLORIDE [Concomitant]
     Active Substance: POTASSIUM CHLORIDE
  68. THEOPHYLLINE ANHYDROUS [Concomitant]
     Active Substance: THEOPHYLLINE ANHYDROUS
     Dosage: 400 MG TAB ER 24H
  69. THEOPHYLLINE ANHYDROUS [Concomitant]
     Active Substance: THEOPHYLLINE ANHYDROUS
  70. DALIRESP [Concomitant]
     Active Substance: ROFLUMILAST
  71. DALIRESP [Concomitant]
     Active Substance: ROFLUMILAST
  72. DALIRESP [Concomitant]
     Active Substance: ROFLUMILAST
  73. CLONIDINE HYDROCHLORIDE [Concomitant]
     Active Substance: CLONIDINE HYDROCHLORIDE
  74. CLONIDINE HYDROCHLORIDE [Concomitant]
     Active Substance: CLONIDINE HYDROCHLORIDE
  75. CLONIDINE HYDROCHLORIDE [Concomitant]
     Active Substance: CLONIDINE HYDROCHLORIDE
  76. ADVAIR HFA [Concomitant]
     Active Substance: FLUTICASONE PROPIONATE\SALMETEROL XINAFOATE
     Dosage: 2 MG
  77. ADVAIR HFA [Concomitant]
     Active Substance: FLUTICASONE PROPIONATE\SALMETEROL XINAFOATE
  78. ADVAIR HFA [Concomitant]
     Active Substance: FLUTICASONE PROPIONATE\SALMETEROL XINAFOATE
  79. DOXYCYCLINE HYCLATE [Concomitant]
     Active Substance: DOXYCYCLINE HYCLATE
  80. DOXYCYCLINE HYCLATE [Concomitant]
     Active Substance: DOXYCYCLINE HYCLATE
  81. DOXYCYCLINE HYCLATE [Concomitant]
     Active Substance: DOXYCYCLINE HYCLATE
  82. SYNTHROID [Concomitant]
     Active Substance: LEVOTHYROXINE SODIUM
  83. SYNTHROID [Concomitant]
     Active Substance: LEVOTHYROXINE SODIUM
  84. SYNTHROID [Concomitant]
     Active Substance: LEVOTHYROXINE SODIUM
  85. .ALPHA.-TOCOPHEROL [Concomitant]
     Active Substance: .ALPHA.-TOCOPHEROL
  86. .ALPHA.-TOCOPHEROL [Concomitant]
     Active Substance: .ALPHA.-TOCOPHEROL
  87. VITAMIN C [Concomitant]
     Active Substance: ASCORBIC ACID
  88. VITAMIN C [Concomitant]
     Active Substance: ASCORBIC ACID
  89. VITAMIN C [Concomitant]
     Active Substance: ASCORBIC ACID
  90. DIETARY SUPPLEMENT\PROBIOTICS [Concomitant]
     Active Substance: DIETARY SUPPLEMENT\PROBIOTICS
  91. DIETARY SUPPLEMENT\PROBIOTICS [Concomitant]
     Active Substance: DIETARY SUPPLEMENT\PROBIOTICS
  92. PRENATAL MULTIVITAMIN + DHA [Concomitant]
     Dosage: UNK

REACTIONS (7)
  - Urosepsis [Unknown]
  - Spinal fusion surgery [Recovering/Resolving]
  - Fatigue [Unknown]
  - Malaise [Unknown]
  - Urinary tract infection [Unknown]
  - Product use in unapproved indication [Unknown]
  - Incorrect dose administered [Unknown]

NARRATIVE: CASE EVENT DATE: 20210526
